FAERS Safety Report 5119098-0 (Version None)
Quarter: 2006Q3

REPORT INFORMATION
  Report Type: 
  Country: None (occurrence: None)
  Receive Date: 20060925
  Receipt Date: 20060914
  Transmission Date: 20061208
  Serious: Yes (Hospitalization)
  Sender: FDA-Public Use
  Company Number: CAWYE934615SEP06

PATIENT
  Age: 7 Year
  Sex: Female

DRUGS (11)
  1. CELLCEPT [Suspect]
     Indication: IMMUNOSUPPRESSION
     Dosage: 320 MG OD ORAL; SEE IMAGE
     Route: 048
     Dates: start: 20060622, end: 20060626
  2. CELLCEPT [Suspect]
     Indication: IMMUNOSUPPRESSION
     Dosage: 320 MG OD ORAL; SEE IMAGE
     Route: 048
     Dates: start: 20060627, end: 20060627
  3. PREDNISONE TAB [Concomitant]
  4. TACROLIMUS (TACROLIMUS) [Concomitant]
  5. RANITIDINE [Concomitant]
  6. ENALTEN (ENALAPRIL) [Concomitant]
  7. MELATONIN (MELATONIN) [Concomitant]
  8. CLONAZEPAM [Concomitant]
  9. CALCITRIOL [Concomitant]
  10. TOPAMAX [Concomitant]
  11. FER-IN-SOL (FERROUS SULFATE) [Concomitant]

REACTIONS (4)
  - BLOOD SODIUM DECREASED [None]
  - CONDITION AGGRAVATED [None]
  - CONVULSION [None]
  - HYPONATRAEMIA [None]
